FAERS Safety Report 7883039-3 (Version None)
Quarter: 2011Q4

REPORT INFORMATION
  Report Type: 
  Country: None (occurrence: None)
  Receive Date: 20111102
  Receipt Date: 20111025
  Transmission Date: 20120403
  Serious: Yes (Hospitalization, Other)
  Sender: FDA-Public Use
  Company Number: US-BIOGENIDEC-2011BI002315

PATIENT
  Age: 41 Year
  Sex: Female

DRUGS (2)
  1. AVONEX [Suspect]
     Route: 030
     Dates: start: 20110601
  2. AVONEX [Suspect]
     Indication: MULTIPLE SCLEROSIS
     Route: 030
     Dates: start: 20100228, end: 20100801

REACTIONS (5)
  - MACROSOMIA [None]
  - COMPLICATION OF PREGNANCY [None]
  - CERVIX DISORDER [None]
  - OLIGOHYDRAMNIOS [None]
  - NAUSEA [None]
